FAERS Safety Report 8521075-4 (Version None)
Quarter: 2012Q3

REPORT INFORMATION
  Report Type: 
  Country: None (occurrence: None)
  Receive Date: 20120719
  Receipt Date: 20120710
  Transmission Date: 20120928
  Serious: Yes (Hospitalization)
  Sender: FDA-Public Use
  Company Number: US-ASTRAZENECA-2010SE11683

PATIENT
  Age: 89 Year
  Sex: Female

DRUGS (1)
  1. NEXIUM [Suspect]
     Route: 048

REACTIONS (9)
  - EYE INFECTION [None]
  - MALAISE [None]
  - LOSS OF CONSCIOUSNESS [None]
  - ARTHRALGIA [None]
  - ARTHROPATHY [None]
  - POLYP [None]
  - LIMB DISCOMFORT [None]
  - PAIN IN EXTREMITY [None]
  - FALL [None]
